FAERS Safety Report 4945761-8 (Version None)
Quarter: 2006Q1

REPORT INFORMATION
  Report Type: 
  Country: None (occurrence: None)
  Receive Date: 20060316
  Receipt Date: 20060303
  Transmission Date: 20060701
  Serious: Yes (Death, Hospitalization)
  Sender: FDA-Public Use
  Company Number: SE-BRISTOL-MYERS SQUIBB COMPANY-13303623

PATIENT
  Age: 53 Year
  Sex: Male

DRUGS (2)
  1. ABILIFY [Suspect]
     Indication: SCHIZOAFFECTIVE DISORDER
     Dates: start: 20050721, end: 20050726
  2. LITHIUM [Concomitant]
     Indication: SCHIZOAFFECTIVE DISORDER

REACTIONS (1)
  - NEUROLEPTIC MALIGNANT SYNDROME [None]
